FAERS Safety Report 4893786-3 (Version None)
Quarter: 2006Q1

REPORT INFORMATION
  Report Type: 
  Country: None (occurrence: None)
  Receive Date: 20060127
  Receipt Date: 20060124
  Transmission Date: 20060701
  Serious: Yes (Life-Threatening)
  Sender: FDA-Public Use
  Company Number: 2006PK00204

PATIENT
  Sex: Female

DRUGS (2)
  1. SCANDICAIN [Suspect]
     Indication: ANAESTHESIA
     Route: 050
     Dates: start: 20060101
  2. XYLONEST [Suspect]
     Indication: ANAESTHESIA
     Route: 050
     Dates: start: 20050101

REACTIONS (2)
  - ACIDOSIS [None]
  - HEPATIC FAILURE [None]
